FAERS Safety Report 4555442-0 (Version None)
Quarter: 2005Q1

REPORT INFORMATION
  Report Type: 
  Country: None (occurrence: None)
  Receive Date: 20050118
  Receipt Date: 20050118
  Transmission Date: 20050727
  Serious: Yes (Other)
  Sender: FDA-Public Use
  Company Number: None

PATIENT
  Sex: Female
  Weight: 77.1115 kg

DRUGS (1)
  1. LEVAQUIN [Suspect]
     Indication: SINUSITIS
     Dosage: 1  DAILY  ORAL
     Route: 048
     Dates: start: 20041230, end: 20050103

REACTIONS (10)
  - ARTHRALGIA [None]
  - ASTHENIA [None]
  - CEREBRAL DISORDER [None]
  - DEPRESSION [None]
  - DIZZINESS [None]
  - MUSCULOSKELETAL DISCOMFORT [None]
  - PAIN IN EXTREMITY [None]
  - PARAESTHESIA [None]
  - STOMACH DISCOMFORT [None]
  - VISION BLURRED [None]
